FAERS Safety Report 8027378-4 (Version None)
Quarter: 2012Q1

REPORT INFORMATION
  Report Type: 
  Country: None (occurrence: None)
  Receive Date: 20120105
  Receipt Date: 20120105
  Transmission Date: 20120608
  Serious: Yes (Hospitalization)
  Sender: FDA-Public Use
  Company Number: None

PATIENT
  Age: 62 Year
  Sex: Male
  Weight: 100 kg

DRUGS (2)
  1. CISPLATIN [Suspect]
     Dosage: 180 MG OTHER IV
     Route: 042
     Dates: start: 20111005, end: 20111006
  2. DOCETAXEL [Suspect]
     Indication: NON-SMALL CELL LUNG CANCER
     Dosage: 150 MG OTHER IV
     Route: 042
     Dates: start: 20111005

REACTIONS (3)
  - NAUSEA [None]
  - VOMITING [None]
  - HYPERGLYCAEMIA [None]
